FAERS Safety Report 5501833-0 (Version None)
Quarter: 2007Q4

REPORT INFORMATION
  Report Type: 
  Country: None (occurrence: None)
  Receive Date: 20071030
  Receipt Date: 20061106
  Transmission Date: 20080405
  Serious: No
  Sender: FDA-Public Use
  Company Number: A0626348A

PATIENT
  Age: 88 Year
  Sex: Male

DRUGS (3)
  1. SEREVENT [Suspect]
     Indication: EMPHYSEMA
     Dosage: 1PUFF TWICE PER DAY
     Route: 055
     Dates: start: 20061001, end: 20061001
  2. ATROVENT [Concomitant]
  3. DIABETA [Concomitant]

REACTIONS (1)
  - DRUG INEFFECTIVE [None]
